FAERS Safety Report 8574094-6 (Version None)
Quarter: 2012Q3

REPORT INFORMATION
  Report Type: 
  Country: None (occurrence: None)
  Receive Date: 20120806
  Receipt Date: 20120802
  Transmission Date: 20120928
  Serious: Yes (Other)
  Sender: FDA-Public Use
  Company Number: PHEH2012US015145

PATIENT
  Sex: Female

DRUGS (11)
  1. CITRICAL [Concomitant]
  2. ASPIRIN [Concomitant]
  3. CIPROFLOXACIN HCL [Concomitant]
  4. LIPITOR [Concomitant]
  5. ESTRACE [Concomitant]
  6. MULTI-VITAMINS [Concomitant]
  7. IBUPROFEN (ADVIL) [Concomitant]
  8. RECLAST [Suspect]
     Indication: OSTEOPOROSIS
     Dosage: UNK UKN,ONCE YEAR
     Route: 042
  9. TYLENOL (CAPLET) [Concomitant]
  10. FOCUS [Concomitant]
  11. SUMATRIPTAN [Concomitant]

REACTIONS (8)
  - DIARRHOEA [None]
  - CONCOMITANT DISEASE PROGRESSION [None]
  - PYREXIA [None]
  - CHALAZION [None]
  - PAIN [None]
  - POST THROMBOTIC SYNDROME [None]
  - INFLUENZA LIKE ILLNESS [None]
  - VOMITING [None]
